FAERS Safety Report 18103284 (Version 3)
Quarter: 2020Q3

REPORT INFORMATION
  Report Type: Spontaneous
  Country: US (occurrence: US)
  Receive Date: 20200803
  Receipt Date: 20200824
  Transmission Date: 20201103
  Serious: No
  Sender: FDA-Public Use
  Company Number: US-PFIZER INC-2020289341

PATIENT
  Age: 66 Year
  Sex: Female
  Weight: 49.9 kg

DRUGS (5)
  1. NORCO [Concomitant]
     Active Substance: ACETAMINOPHEN\HYDROCODONE BITARTRATE
     Indication: PAIN
     Dosage: UNK, DAILY (TAKES THIS EVERYDAY, BUT TRIES TO ONLY TAKE 2 OR 3 A DAY, CAN TAKE UP TO 4X/DAY)
  2. PEPCID [Concomitant]
     Active Substance: FAMOTIDINE
     Indication: GASTROOESOPHAGEAL REFLUX DISEASE
     Dosage: 10 MG, 2X/DAY
     Route: 048
  3. XELJANZ XR [Suspect]
     Active Substance: TOFACITINIB CITRATE
     Indication: PSORIATIC ARTHROPATHY
     Dosage: 11 MG, 1X/DAY
     Route: 048
     Dates: start: 202007, end: 20200726
  4. TYLENOL [Concomitant]
     Active Substance: ACETAMINOPHEN
     Indication: PAIN
     Dosage: 325 MG, 1X/DAY
  5. PEPCID [Concomitant]
     Active Substance: FAMOTIDINE
     Indication: BARRETT^S OESOPHAGUS

REACTIONS (7)
  - Tendon pain [Unknown]
  - Muscle spasms [Recovering/Resolving]
  - Increased tendency to bruise [Recovering/Resolving]
  - Ligament pain [Unknown]
  - Pain [Recovering/Resolving]
  - Myalgia [Unknown]
  - Diarrhoea [Recovered/Resolved]

NARRATIVE: CASE EVENT DATE: 202007
